FAERS Safety Report 9385828 (Version 3)
Quarter: 2013Q3

REPORT INFORMATION
  Report Type: Report from Study
  Country: DE (occurrence: DE)
  Receive Date: 20130705
  Receipt Date: 20130802
  Transmission Date: 20140515
  Serious: Yes (Death, Hospitalization, Other)
  Sender: FDA-Public Use
  Company Number: DE-ASTRAZENECA-2013SE50720

PATIENT
  Age: 62 Year
  Sex: Female

DRUGS (9)
  1. FULVESTRANT [Suspect]
     Indication: OESTROGEN RECEPTOR POSITIVE BREAST CANCER
     Route: 030
     Dates: start: 20130102, end: 20130616
  2. PANTOZOL [Concomitant]
     Indication: PROPHYLAXIS
     Route: 048
     Dates: end: 20130616
  3. BELEC ZOK [Concomitant]
     Indication: HYPERTENSION
     Dosage: 142.5 MG, 1.5/DAY
     Route: 048
     Dates: end: 20130616
  4. DELIX [Concomitant]
     Indication: HYPERTENSION
     Route: 048
     Dates: end: 20130616
  5. MEZAVANT [Concomitant]
     Indication: CROHN^S DISEASE
     Route: 048
     Dates: end: 20130616
  6. HCT 25 [Concomitant]
     Indication: HYPERTENSION
     Route: 048
  7. METOPROLOL [Concomitant]
     Indication: HYPERTENSION
     Route: 048
  8. RAMIPRIL [Concomitant]
     Indication: HYPERTENSION
     Route: 048
  9. IMESON [Concomitant]
     Indication: SLEEP DISORDER
     Route: 048

REACTIONS (4)
  - Renal failure [Fatal]
  - Urosepsis [Fatal]
  - General physical health deterioration [Recovered/Resolved with Sequelae]
  - Pleural effusion [Recovered/Resolved with Sequelae]
